FAERS Safety Report 4454848-8 (Version None)
Quarter: 2004Q3

REPORT INFORMATION
  Report Type: 
  Country: None (occurrence: None)
  Receive Date: 20040826
  Receipt Date: 20040615
  Transmission Date: 20050211
  Serious: No
  Sender: FDA-Public Use
  Company Number: WAES 0406USA01578

PATIENT
  Age: 56 Year
  Sex: Male
  Weight: 75.7507 kg

DRUGS (3)
  1. ZETIA [Suspect]
     Indication: BLOOD CHOLESTEROL INCREASED
     Dosage: 10 MG DAILY PO
     Route: 048
     Dates: start: 20040315, end: 20040101
  2. ALLEGRA-D [Concomitant]
  3. NASONEX [Concomitant]

REACTIONS (1)
  - HEPATIC ENZYME INCREASED [None]
